FAERS Safety Report 6822723 (Version 5)
Quarter: 2013Q3

REPORT INFORMATION
  Report Type: Spontaneous
  Country: US (occurrence: US)
  Receive Date: 20081125
  Receipt Date: 20130814
  Transmission Date: 20140515
  Serious: Yes (Hospitalization, Other)
  Sender: FDA-Public Use
  Company Number: US-PFIZER INC-2007104987

PATIENT
  Sex: Female
  Weight: 70.3 kg

DRUGS (13)
  1. DILANTIN [Suspect]
     Indication: CONVULSION
     Dosage: 100 MG, 2X/DAY
     Route: 048
     Dates: start: 1988
  2. DILANTIN [Interacting]
     Indication: CONVULSION
  3. DILANTIN [Interacting]
     Indication: EPILEPSY
  4. DILANTIN [Interacting]
     Indication: CONVULSION
     Dosage: 50 MG, UNK
     Route: 048
     Dates: start: 1991
  5. DILANTIN [Interacting]
     Indication: CONVULSION
  6. NEURONTIN [Suspect]
     Dosage: 100 MG, UNK
     Route: 048
     Dates: start: 199507, end: 199508
  7. SYNTHROID [Interacting]
     Indication: THYROIDECTOMY
  8. REMERON [Concomitant]
     Dosage: UNK
     Dates: start: 199706
  9. TRAZODONE [Concomitant]
  10. ZOLOFT [Concomitant]
  11. RESTORIL [Concomitant]
  12. NORPRAMIN [Concomitant]
  13. DESYREL [Concomitant]

REACTIONS (10)
  - Depression [Unknown]
  - Convulsion [Recovered/Resolved]
  - Weight increased [Unknown]
  - Cognitive disorder [Unknown]
  - Psychotic disorder [Recovered/Resolved]
  - Aphasia [Recovered/Resolved]
  - Drug level decreased [Not Recovered/Not Resolved]
  - Drug interaction [Not Recovered/Not Resolved]
  - Antinuclear antibody positive [Recovered/Resolved]
  - Antinuclear antibody increased [Unknown]
